FAERS Safety Report 4951435-X (Version None)
Quarter: 2006Q1

REPORT INFORMATION
  Report Type: 
  Country: None (occurrence: None)
  Receive Date: 20060314
  Receipt Date: 20060310
  Transmission Date: 20060701
  Serious: Yes (Death, Other)
  Sender: FDA-Public Use
  Company Number: 2006US000496

PATIENT
  Age: 20 Year
  Sex: Male

DRUGS (5)
  1. PROGRAF [Suspect]
     Indication: PROPHYLAXIS AGAINST TRANSPLANT REJECTION
     Dosage: 3MG, BID; ORAL
     Route: 048
  2. RANITIDINE [Concomitant]
  3. PENTAMIDINE [Concomitant]
  4. ITRACONZOLE [Concomitant]
  5. VALGANCICLOVIR [Concomitant]

REACTIONS (9)
  - ADENOVIRUS INFECTION [None]
  - CARDIAC FAILURE [None]
  - DEPRESSED LEVEL OF CONSCIOUSNESS [None]
  - DRUG INTERACTION [None]
  - HEPATIC FAILURE [None]
  - MULTI-ORGAN FAILURE [None]
  - PANCYTOPENIA [None]
  - RESPIRATORY FAILURE [None]
  - THROMBOTIC THROMBOCYTOPENIC PURPURA [None]
